FAERS Safety Report 11058272 (Version 1)
Quarter: 2015Q2

REPORT INFORMATION
  Report Type: Spontaneous
  Country: US (occurrence: None)
  Receive Date: 20150422
  Receipt Date: 20150422
  Transmission Date: 20150821
  Serious: Yes (Disabling)
  Sender: FDA-Public Use
  Company Number: None

PATIENT
  Sex: Female
  Weight: 68.04 kg

DRUGS (13)
  1. VITAMIN C [Concomitant]
     Active Substance: ASCORBIC ACID
  2. CALCIUM W/D-3 [Concomitant]
  3. CORTISONE [Suspect]
     Active Substance: CORTISONE\HYDROCORTISONE
  4. AMITRIPTILINE [Concomitant]
  5. COSAMIN [Concomitant]
  6. TEMAZEPAM. [Concomitant]
     Active Substance: TEMAZEPAM
  7. CLONAZEPAM. [Concomitant]
     Active Substance: CLONAZEPAM
  8. LEVOTHYROXINE [Concomitant]
     Active Substance: LEVOTHYROXINE
  9. MULTIPLE [Concomitant]
  10. FISH OMEGA [Concomitant]
  11. METHYLPREDNISOLONE. [Suspect]
     Active Substance: METHYLPREDNISOLONE
     Indication: GASTROINTESTINAL PAIN
     Dosage: 6 PILLS 1ST DAY 5 PILLS WND DAY ETC. DIFFERENT AMOUNTS OF PILLS OVER 6 DAYS.
     Route: 048
     Dates: start: 2007, end: 2012
  12. FOSSOMAX [Concomitant]
  13. TRAZODONE [Concomitant]
     Active Substance: TRAZODONE HYDROCHLORIDE

REACTIONS (19)
  - Immune system disorder [None]
  - Thermal burn [None]
  - Blister [None]
  - Dental caries [None]
  - Medical device pain [None]
  - Bone disorder [None]
  - Lip disorder [None]
  - Contusion [None]
  - Procedural pain [None]
  - Morbid thoughts [None]
  - Tooth discolouration [None]
  - Emotional disorder [None]
  - Lung disorder [None]
  - Deformity [None]
  - Impaired healing [None]
  - Bone pain [None]
  - Tooth fracture [None]
  - Tooth loss [None]
  - Wound [None]

NARRATIVE: CASE EVENT DATE: 2012
